FAERS Safety Report 13144373 (Version 2)
Quarter: 2017Q1

REPORT INFORMATION
  Report Type: Spontaneous
  Country: US (occurrence: US)
  Receive Date: 20170124
  Receipt Date: 20170311
  Transmission Date: 20170428
  Serious: No
  Sender: FDA-Public Use
  Company Number: US-LUNDBECK-DKLU2024935

PATIENT
  Age: 70 Year
  Sex: Male

DRUGS (5)
  1. MIDODRINE [Suspect]
     Active Substance: MIDODRINE
     Route: 065
     Dates: end: 20170105
  2. NORTHERA [Suspect]
     Active Substance: DROXIDOPA
     Indication: PRODUCT USED FOR UNKNOWN INDICATION
     Route: 065
     Dates: start: 20170106
  3. NORTHERA [Suspect]
     Active Substance: DROXIDOPA
     Dosage: C AND TITRATING
     Route: 065
  4. MIDODRINE [Suspect]
     Active Substance: MIDODRINE
     Indication: PRODUCT USED FOR UNKNOWN INDICATION
     Route: 065
     Dates: end: 20170105
  5. MIDODRINE [Suspect]
     Active Substance: MIDODRINE
     Route: 065
     Dates: end: 20170105

REACTIONS (2)
  - Hypotension [Unknown]
  - Dizziness [Not Recovered/Not Resolved]

NARRATIVE: CASE EVENT DATE: 20170106
